FAERS Safety Report 19960166 (Version 1)
Quarter: 2021Q4

REPORT INFORMATION
  Report Type: Report from Study
  Country: IT (occurrence: IT)
  Receive Date: 20211015
  Receipt Date: 20211015
  Transmission Date: 20220303
  Serious: Yes (Other)
  Sender: FDA-Public Use
  Company Number: IT-KOREA IPSEN PHARMA-2021-24896

PATIENT

DRUGS (2)
  1. BOTULINUM TOXIN TYPE A [Suspect]
     Active Substance: BOTULINUM TOXIN TYPE A
     Indication: Hypertonic bladder
     Dosage: DOSE NOT REPORTED
     Route: 030
  2. BOTULINUM TOXIN TYPE A [Suspect]
     Active Substance: BOTULINUM TOXIN TYPE A
     Indication: Off label use

REACTIONS (4)
  - Urinary tract infection [Unknown]
  - Bladder catheterisation [Unknown]
  - Haematuria [Unknown]
  - Off label use [Unknown]
